FAERS Safety Report 26087619 (Version 1)
Quarter: 2025Q4

REPORT INFORMATION
  Report Type: Spontaneous
  Country: EU (occurrence: EU)
  Receive Date: 20251125
  Receipt Date: 20251125
  Transmission Date: 20260118
  Serious: Yes (Other)
  Sender: ASTELLAS
  Company Number: EU-ASTELLAS-2025-AER-064563

PATIENT
  Sex: Female

DRUGS (1)
  1. GILTERITINIB [Suspect]
     Active Substance: GILTERITINIB
     Indication: Product used for unknown indication
     Route: 065

REACTIONS (5)
  - Cardiotoxicity [Unknown]
  - Electrocardiogram QT prolonged [Unknown]
  - Dermatitis exfoliative generalised [Unknown]
  - Skin toxicity [Unknown]
  - Rash [Unknown]
